FAERS Safety Report 14723645 (Version 4)
Quarter: 2020Q3

REPORT INFORMATION
  Report Type: Report from Study
  Country: US (occurrence: US)
  Receive Date: 20180405
  Receipt Date: 20190725
  Transmission Date: 20201104
  Serious: Yes (Hospitalization)
  Sender: FDA-Public Use
  Company Number: US-ASTRAZENECA-2016SE87869

PATIENT
  Age: 82 Year
  Sex: Male
  Weight: 81.6 kg

DRUGS (13)
  1. AMBIEN [Concomitant]
     Active Substance: ZOLPIDEM TARTRATE
     Indication: INSOMNIA
     Route: 048
     Dates: start: 20160412
  2. SODIUM CHLORIDE. [Concomitant]
     Active Substance: SODIUM CHLORIDE
     Indication: HYPONATRAEMIA
     Dosage: 1000 ML
     Route: 042
     Dates: start: 20160810, end: 20160810
  3. TREMELIMUMAB. [Suspect]
     Active Substance: TREMELIMUMAB
     Indication: NEOPLASM MALIGNANT
     Route: 042
     Dates: start: 20160622
  4. VITAMIN D3 [Concomitant]
     Active Substance: CHOLECALCIFEROL
     Indication: SUPPLEMENTATION THERAPY
     Dosage: DAILY
     Route: 048
     Dates: start: 20160511
  5. DEXTROSE 5 %?0.9 % SODIUM CHLORIDE [Concomitant]
     Indication: HYPONATRAEMIA
     Dosage: 500 ML ONCE
     Route: 042
     Dates: start: 20160810, end: 20160810
  6. ZETIA [Concomitant]
     Active Substance: EZETIMIBE
     Indication: HYPERLIPIDAEMIA
     Dosage: 10 MG
     Route: 048
  7. REGLAN [Concomitant]
     Active Substance: METOCLOPRAMIDE HYDROCHLORIDE
     Indication: HICCUPS
     Dosage: 10 MG ONCE
     Route: 042
     Dates: start: 20160810, end: 20160810
  8. MEDI4736 [Suspect]
     Active Substance: DURVALUMAB
     Indication: NEOPLASM MALIGNANT
     Route: 042
     Dates: start: 20160622
  9. ZOFRAN [Concomitant]
     Active Substance: ONDANSETRON HYDROCHLORIDE
     Indication: HICCUPS
     Dosage: 16 MG
     Route: 042
     Dates: start: 20160810, end: 20160810
  10. BACLOFEN. [Concomitant]
     Active Substance: BACLOFEN
     Indication: HICCUPS
     Dosage: 5.0MG AS REQUIRED
     Route: 048
     Dates: start: 20160811
  11. CRESTOR [Concomitant]
     Active Substance: ROSUVASTATIN CALCIUM
     Indication: HYPERLIPIDAEMIA
     Route: 048
     Dates: end: 20160816
  12. TRAMADOL. [Concomitant]
     Active Substance: TRAMADOL
     Indication: PAIN
     Dosage: 50.0MG AS REQUIRED
     Route: 048
     Dates: start: 20160413
  13. TRIAMCINOLONE [Concomitant]
     Active Substance: TRIAMCINOLONE
     Indication: RASH
     Route: 061
     Dates: start: 20151221

REACTIONS (2)
  - Fatigue [Not Recovered/Not Resolved]
  - Myelitis transverse [Recovered/Resolved with Sequelae]

NARRATIVE: CASE EVENT DATE: 20160815
